FAERS Safety Report 7588495-6 (Version None)
Quarter: 2011Q3

REPORT INFORMATION
  Report Type: 
  Country: None (occurrence: None)
  Receive Date: 20110705
  Receipt Date: 20110628
  Transmission Date: 20111222
  Serious: Yes (Other)
  Sender: FDA-Public Use
  Company Number: US-PFIZER INC-2011144273

PATIENT
  Sex: Female
  Weight: 76.644 kg

DRUGS (5)
  1. SOMAVERT [Suspect]
     Indication: BLOOD GROWTH HORMONE ABNORMAL
     Dosage: 40 MG, 1X/DAY
     Dates: start: 20110610, end: 20110614
  2. METOPROLOL [Concomitant]
     Indication: BLOOD PRESSURE ABNORMAL
     Dosage: 50 MG, 1X/DAY, AT NIGHT
  3. MICARDIS [Concomitant]
     Indication: BLOOD PRESSURE ABNORMAL
     Dosage: 40 MG, 1X/DAY, IN THE MORNING
     Dates: start: 20110401
  4. SUCRALFATE [Concomitant]
     Indication: GASTROOESOPHAGEAL REFLUX DISEASE
     Dosage: 1 G, 4X/DAY
  5. SOMAVERT [Suspect]
     Dosage: 40 MG, 1X/DAY
     Dates: start: 20110616

REACTIONS (6)
  - ACNE [None]
  - ASTHENIA [None]
  - RASH [None]
  - DYSPNOEA [None]
  - PRURITUS GENERALISED [None]
  - CHROMATURIA [None]
